FAERS Safety Report 4719519-9 (Version None)
Quarter: 2005Q3

REPORT INFORMATION
  Report Type: 
  Country: None (occurrence: None)
  Receive Date: 20050719
  Receipt Date: 20050719
  Transmission Date: 20060218
  Serious: Yes (Hospitalization)
  Sender: FDA-Public Use
  Company Number: None

PATIENT
  Age: 66 Year
  Sex: Male

DRUGS (9)
  1. INSULIN GLARGINE [Suspect]
     Indication: DIABETES MELLITUS
     Dosage: 34 UNITS SC QHS
     Route: 058
     Dates: start: 20031009, end: 20050718
  2. ASPIRIN [Concomitant]
  3. CLOPIDOGREL BISULFATE [Concomitant]
  4. DOCUSATE NA [Concomitant]
  5. EZETIMIBE [Concomitant]
  6. OLANZAPINE [Concomitant]
  7. FUROSEMIDE [Concomitant]
  8. LANTUS [Concomitant]
  9. SIMVASTATIN [Concomitant]

REACTIONS (3)
  - GENERAL NUTRITION DISORDER [None]
  - HYPOGLYCAEMIA [None]
  - MENTAL STATUS CHANGES [None]
